FAERS Safety Report 9454828 (Version 1)
Quarter: 2013Q3

REPORT INFORMATION
  Report Type: Spontaneous
  Country: US (occurrence: US)
  Receive Date: 20130813
  Receipt Date: 20130813
  Transmission Date: 20140515
  Serious: No
  Sender: FDA-Public Use
  Company Number: US-B.I. PHARMACEUTICALS,INC./RIDGEFIELD-2013-BI-23725BP

PATIENT
  Age: 67 Year
  Sex: Male

DRUGS (1)
  1. ATROVENT INHALATION SOLUTION [Suspect]
     Indication: ASTHMA
     Route: 055

REACTIONS (3)
  - Dyspnoea [Recovered/Resolved]
  - Drug ineffective for unapproved indication [Recovered/Resolved]
  - Off label use [Unknown]
